FAERS Safety Report 5143650-X (Version None)
Quarter: 2006Q4

REPORT INFORMATION
  Report Type: 
  Country: None (occurrence: None)
  Receive Date: 20061103
  Receipt Date: 20060921
  Transmission Date: 20070319
  Serious: Yes (Hospitalization)
  Sender: FDA-Public Use
  Company Number: US-AMGEN-US194606

PATIENT
  Age: 58 Year
  Sex: Male

DRUGS (6)
  1. PROCRIT [Suspect]
     Indication: HIV INFECTION
     Route: 058
     Dates: start: 20050412, end: 20060920
  2. COMBIVIR [Concomitant]
     Route: 065
     Dates: start: 19980101
  3. CRIXIVAN [Concomitant]
     Route: 065
  4. AMITRIPTYLINE HCL [Concomitant]
     Route: 065
  5. ADVAIR DISKUS 100/50 [Concomitant]
     Route: 055
  6. SPIRIVA [Concomitant]
     Route: 065

REACTIONS (3)
  - APLASIA PURE RED CELL [None]
  - HAEMOLYSIS [None]
  - THERAPEUTIC RESPONSE DECREASED [None]
